FAERS Safety Report 23968392 (Version 1)
Quarter: 2024Q2

REPORT INFORMATION
  Report Type: Spontaneous
  Country: FR (occurrence: FR)
  Receive Date: 20240612
  Receipt Date: 20240612
  Transmission Date: 20240716
  Serious: Yes (Hospitalization, Other)
  Sender: FDA-Public Use
  Company Number: None

PATIENT
  Age: 69 Year
  Sex: Male
  Weight: 75 kg

DRUGS (1)
  1. STIVARGA [Suspect]
     Active Substance: REGORAFENIB\REGORAFENIB MONOHYDRATE
     Indication: Chondrosarcoma
     Dosage: 80 MG, BID
     Route: 048
     Dates: start: 20240419, end: 20240515

REACTIONS (1)
  - Tumour cavitation [Not Recovered/Not Resolved]

NARRATIVE: CASE EVENT DATE: 20240504
